FAERS Safety Report 5417038-8 (Version None)
Quarter: 2007Q3

REPORT INFORMATION
  Report Type: 
  Country: None (occurrence: None)
  Receive Date: 20070816
  Receipt Date: 20070809
  Transmission Date: 20080115
  Serious: Yes (Other)
  Sender: FDA-Public Use
  Company Number: JP-ASTRAZENECA-2007AP04571

PATIENT
  Age: 29553 Day
  Sex: Male

DRUGS (1)
  1. PULMICORT [Suspect]
     Indication: ASTHMA
     Route: 055
     Dates: start: 20070615

REACTIONS (4)
  - ASTHENIA [None]
  - HALLUCINATION, VISUAL [None]
  - LACRIMATION INCREASED [None]
  - SALIVARY HYPERSECRETION [None]
